FAERS Safety Report 6373704-1 (Version None)
Quarter: 2009Q3

REPORT INFORMATION
  Report Type: 
  Country: None (occurrence: None)
  Receive Date: 20090924
  Receipt Date: 20090417
  Transmission Date: 20100115
  Serious: No
  Sender: FDA-Public Use
  Company Number: US-ASTRAZENECA-2009UW09746

PATIENT
  Age: 3 Day
  Sex: Male

DRUGS (1)
  1. SEROQUEL [Suspect]
     Route: 048

REACTIONS (4)
  - AGITATION NEONATAL [None]
  - CRYING [None]
  - DRUG WITHDRAWAL SYNDROME NEONATAL [None]
  - IRRITABILITY [None]
